FAERS Safety Report 6912715-1 (Version None)
Quarter: 2010Q3

REPORT INFORMATION
  Report Type: 
  Country: None (occurrence: None)
  Receive Date: 20100806
  Receipt Date: 20081014
  Transmission Date: 20110219
  Serious: No
  Sender: FDA-Public Use
  Company Number: US-PFIZER INC-2008081547

PATIENT
  Sex: Female
  Weight: 81.818 kg

DRUGS (6)
  1. DETROL LA [Suspect]
     Indication: NOCTURIA
  2. DETROL LA [Suspect]
     Indication: URINARY INCONTINENCE
  3. LIPITOR [Concomitant]
  4. BENICAR [Concomitant]
  5. VIOXX [Concomitant]
  6. PREMPRO [Concomitant]

REACTIONS (1)
  - DRUG INEFFECTIVE [None]
